FAERS Safety Report 4312119-4 (Version None)
Quarter: 2004Q1

REPORT INFORMATION
  Report Type: 
  Country: None (occurrence: None)
  Receive Date: 20040304
  Receipt Date: 20040304
  Transmission Date: 20041129
  Serious: Yes (Hospitalization)
  Sender: FDA-Public Use
  Company Number: None

PATIENT
  Sex: Male

DRUGS (1)
  1. WARFARIN SODIUM [Suspect]
     Indication: ATRIAL FIBRILLATION
     Dosage: 5MG QD EXCEPT MWF 2.5MG SAME DOSE SINCE 9-13-02
     Dates: start: 20020913

REACTIONS (1)
  - POST PROCEDURAL HAEMORRHAGE [None]
